FAERS Safety Report 7802105-1 (Version None)
Quarter: 2011Q4

REPORT INFORMATION
  Report Type: 
  Country: None (occurrence: None)
  Receive Date: 20111005
  Receipt Date: 20110920
  Transmission Date: 20120403
  Serious: Yes (Hospitalization, Other)
  Sender: FDA-Public Use
  Company Number: JPI-P-017142

PATIENT
  Age: 44 Year
  Sex: Female

DRUGS (3)
  1. MULTIPLE UNSPECIFIED MEDICATIONS [Concomitant]
  2. XYREM [Suspect]
     Indication: SOMNOLENCE
     Dosage: 9 GM (4.5 GM,2 IN 1 D),ORAL ; 9 GM (4.5 GM,2 IN 1 D),ORAL
     Route: 048
     Dates: start: 20110918
  3. XYREM [Suspect]
     Indication: SOMNOLENCE
     Dosage: 9 GM (4.5 GM,2 IN 1 D),ORAL ; 9 GM (4.5 GM,2 IN 1 D),ORAL
     Route: 048
     Dates: start: 20101001, end: 20110915

REACTIONS (4)
  - INTERVERTEBRAL DISC DISORDER [None]
  - NECK PAIN [None]
  - HEADACHE [None]
  - CONDITION AGGRAVATED [None]
